FAERS Safety Report 17521415 (Version 2)
Quarter: 2020Q1

REPORT INFORMATION
  Report Type: Spontaneous
  Country: AT (occurrence: AT)
  Receive Date: 20200310
  Receipt Date: 20200325
  Transmission Date: 20200409
  Serious: Yes (Other)
  Sender: FDA-Public Use
  Company Number: NVSC2020AT065713

PATIENT
  Sex: Female
  Weight: 98 kg

DRUGS (1)
  1. EXFORGE HCT [Suspect]
     Active Substance: AMLODIPINE BESYLATE\HYDROCHLOROTHIAZIDE\VALSARTAN
     Indication: HYPERTENSION
     Dosage: 1 DF (STRENGTH: 10/160/12.5 MG)
     Route: 065
     Dates: start: 20181130, end: 20181130

REACTIONS (6)
  - Pain in extremity [Unknown]
  - C-reactive protein increased [Unknown]
  - Alanine aminotransferase increased [Unknown]
  - Haematuria [Recovered/Resolved]
  - Aspartate aminotransferase increased [Unknown]
  - Skin graft detachment [Recovered/Resolved]

NARRATIVE: CASE EVENT DATE: 20181130
